FAERS Safety Report 13631585 (Version 1)
Quarter: 2017Q2

REPORT INFORMATION
  Report Type: Spontaneous
  Country: US (occurrence: US)
  Receive Date: 20170531
  Receipt Date: 20170531
  Transmission Date: 20170830
  Serious: No
  Sender: FDA-Public Use
  Company Number: US-ASTELLAS-1394800

PATIENT
  Sex: Male

DRUGS (10)
  1. WARFARIN [Concomitant]
     Active Substance: WARFARIN
  2. FLECAINIDE [Concomitant]
     Active Substance: FLECAINIDE
  3. LIPITOR [Concomitant]
     Active Substance: ATORVASTATIN CALCIUM
  4. FISH OIL [Concomitant]
     Active Substance: FISH OIL
  5. TENORMIN [Concomitant]
     Active Substance: ATENOLOL
  6. TARCEVA [Suspect]
     Active Substance: ERLOTINIB HYDROCHLORIDE
     Route: 048
     Dates: start: 20140303
  7. TARCEVA [Suspect]
     Active Substance: ERLOTINIB HYDROCHLORIDE
     Indication: LUNG NEOPLASM MALIGNANT
     Route: 048
     Dates: start: 2009, end: 2009
  8. VITAMIN C [Concomitant]
     Active Substance: ASCORBIC ACID
  9. METHOCARBAMOL. [Concomitant]
     Active Substance: METHOCARBAMOL
  10. TARCEVA [Suspect]
     Active Substance: ERLOTINIB HYDROCHLORIDE
     Route: 048
     Dates: start: 20140505

REACTIONS (7)
  - Skin fissures [Recovered/Resolved]
  - Skin ulcer [Unknown]
  - Rash [Recovered/Resolved]
  - Scab [Unknown]
  - Nausea [Recovered/Resolved]
  - Nodule [Unknown]
  - Skin exfoliation [Recovered/Resolved]
